FAERS Safety Report 4880111-7 (Version None)
Quarter: 2005Q4

REPORT INFORMATION
  Report Type: 
  Country: None (occurrence: None)
  Receive Date: 20051223
  Receipt Date: 20050923
  Transmission Date: 20060501
  Serious: Yes (Hospitalization)
  Sender: FDA-Public Use
  Company Number: 05P-163-0311777-00

PATIENT
  Age: 42 Year
  Sex: Female
  Weight: 125.5 kg

DRUGS (10)
  1. HUMIRA [Suspect]
     Indication: RHEUMATOID ARTHRITIS
     Dosage: 40 MG, 1 IN 2 WK, SUBCUTANEOUS
     Route: 058
     Dates: start: 20040301, end: 20050101
  2. BENZONATATE [Concomitant]
  3. ZOLAR [Concomitant]
  4. PREDNISONE [Concomitant]
  5. FOLIC ACID [Concomitant]
  6. CALCITRITIOL [Concomitant]
  7. HYDROCHLOROTHIAZIDE [Concomitant]
  8. RANITIDINE [Concomitant]
  9. HYDROCODONE BITARTRATE [Concomitant]
  10. LAPRINAZILE [Concomitant]

REACTIONS (4)
  - BLISTER [None]
  - DYSPNOEA [None]
  - RASH [None]
  - WOUND [None]
